FAERS Safety Report 4732289-3 (Version None)
Quarter: 2005Q3

REPORT INFORMATION
  Report Type: 
  Country: None (occurrence: None)
  Receive Date: 20050726
  Receipt Date: 20041210
  Transmission Date: 20060218
  Serious: Yes (Hospitalization)
  Sender: FDA-Public Use
  Company Number: 05ITY0012

PATIENT
  Age: 76 Year
  Sex: Male

DRUGS (3)
  1. AGGRASTAT [Suspect]
     Indication: ACUTE CORONARY SYNDROME
     Dosage: 12.5MG INJECTION; 6.25MG QD
     Dates: start: 20041117, end: 20041118
  2. PLAVIX [Suspect]
     Indication: ACUTE CORONARY SYNDROME
     Dosage: 75MG QD
     Dates: start: 20041116, end: 20041118
  3. ASCRIPTIN (ASCRIPTIN) [Suspect]
     Indication: ACUTE CORONARY SYNDROME
     Dates: start: 20041117, end: 20041118

REACTIONS (1)
  - THROMBOCYTOPENIA [None]
